FAERS Safety Report 7872375-2 (Version None)
Quarter: 2011Q4

REPORT INFORMATION
  Report Type: 
  Country: None (occurrence: None)
  Receive Date: 20111030
  Receipt Date: 20110318
  Transmission Date: 20120403
  Serious: No
  Sender: FDA-Public Use
  Company Number: US-AMGEN-USASP2011015119

PATIENT
  Age: 45 Year
  Sex: Male

DRUGS (1)
  1. ENBREL [Suspect]
     Indication: PSORIASIS
     Dosage: 50 MG, ONCE IN EVERY FOUR DAYS
     Dates: start: 20110209

REACTIONS (3)
  - RASH PAPULAR [None]
  - RASH PRURITIC [None]
  - DRY MOUTH [None]
